FAERS Safety Report 25596614 (Version 1)
Quarter: 2025Q3

REPORT INFORMATION
  Report Type: Spontaneous
  Country: US (occurrence: US)
  Receive Date: 20250723
  Receipt Date: 20250723
  Transmission Date: 20251020
  Serious: No
  Sender: ADVANZ PHARMA
  Company Number: US-ADVANZ PHARMA-202507006111

PATIENT

DRUGS (1)
  1. SALAGEN [Suspect]
     Active Substance: PILOCARPINE HYDROCHLORIDE
     Route: 048

REACTIONS (4)
  - Exposure to allergen [Unknown]
  - Hypersensitivity [Not Recovered/Not Resolved]
  - Hypersensitivity [Unknown]
  - Contraindicated product administered [Unknown]
